FAERS Safety Report 4343714-4 (Version None)
Quarter: 2004Q2

REPORT INFORMATION
  Report Type: 
  Country: None (occurrence: None)
  Receive Date: 20040419
  Receipt Date: 20070407
  Transmission Date: 20050107
  Serious: Yes (Death)
  Sender: FDA-Public Use
  Company Number: 163-20785-04040167

PATIENT
  Age: 8 Year
  Sex: Female

DRUGS (1)
  1. THALOMID [Suspect]
     Indication: NEUROBLASTOMA
     Dosage: 200 MG, DAILY, ORAL
     Route: 048
     Dates: start: 20030917, end: 20040316

REACTIONS (2)
  - MALIGNANT NEOPLASM PROGRESSION [None]
  - NEUROBLASTOMA [None]
